FAERS Safety Report 8218360-2 (Version None)
Quarter: 2012Q1

REPORT INFORMATION
  Report Type: 
  Country: None (occurrence: None)
  Receive Date: 20120319
  Receipt Date: 20110624
  Transmission Date: 20120608
  Serious: Yes (Hospitalization)
  Sender: FDA-Public Use
  Company Number: US-GLAXOSMITHKLINE-A0935916A

PATIENT
  Age: 75 Year
  Sex: Male

DRUGS (1)
  1. AVANDIA [Suspect]
     Indication: DIABETES MELLITUS
     Route: 048
     Dates: start: 20051024, end: 20070605

REACTIONS (5)
  - CHEST PAIN [None]
  - ABDOMINAL PAIN [None]
  - CORONARY ARTERIAL STENT INSERTION [None]
  - MULTIPLE INJURIES [None]
  - MYOCARDIAL INFARCTION [None]
